FAERS Safety Report 25938658 (Version 1)
Quarter: 2025Q4

REPORT INFORMATION
  Report Type: Spontaneous
  Country: GB (occurrence: GB)
  Receive Date: 20251019
  Receipt Date: 20251019
  Transmission Date: 20260117
  Serious: Yes (Other)
  Sender: CELLTRION
  Company Number: None

PATIENT

DRUGS (2)
  1. YUFLYMA [Suspect]
     Active Substance: ADALIMUMAB-AATY
     Indication: Adverse drug reaction
     Dosage: 40 MG IN ALTERNATE WEEKS
     Dates: start: 20250501
  2. YUFLYMA [Suspect]
     Active Substance: ADALIMUMAB-AATY
     Indication: Psoriasis

REACTIONS (4)
  - Serum sickness-like reaction [Unknown]
  - Nasal congestion [Unknown]
  - Rhinitis allergic [Unknown]
  - Cough [Unknown]

NARRATIVE: CASE EVENT DATE: 20250501
